FAERS Safety Report 4366143-6 (Version None)
Quarter: 2004Q2

REPORT INFORMATION
  Report Type: 
  Country: None (occurrence: None)
  Receive Date: 20040524
  Receipt Date: 20040507
  Transmission Date: 20050107
  Serious: Yes (Disabling)
  Sender: FDA-Public Use
  Company Number: DE-SHR-04-023097

PATIENT
  Age: 42 Year
  Sex: Female

DRUGS (2)
  1. BETAFERON (INTERFERON BETA - 1B) INJECTION, 250 UG [Suspect]
     Indication: MULTIPLE SCLEROSIS
     Dosage: EVERY 2D, SUBCUTANEOUS
     Route: 058
     Dates: start: 19950101
  2. ACETAMINOPHEN [Concomitant]

REACTIONS (3)
  - INJECTION SITE ATROPHY [None]
  - INJECTION SITE ERYTHEMA [None]
  - INJECTION SITE NODULE [None]
